FAERS Safety Report 4589413-5 (Version None)
Quarter: 2005Q1

REPORT INFORMATION
  Report Type: 
  Country: None (occurrence: None)
  Receive Date: 20050216
  Receipt Date: 20050208
  Transmission Date: 20050727
  Serious: No
  Sender: FDA-Public Use
  Company Number: 2005UW02295

PATIENT

DRUGS (1)
  1. DIPRIVAN [Suspect]
     Indication: ANAESTHESIA

REACTIONS (1)
  - DELAYED RECOVERY FROM ANAESTHESIA [None]
